FAERS Safety Report 6031897-X (Version None)
Quarter: 2009Q1

REPORT INFORMATION
  Report Type: 
  Country: None (occurrence: None)
  Receive Date: 20090108
  Receipt Date: 20090107
  Transmission Date: 20090719
  Serious: Yes (Other)
  Sender: FDA-Public Use
  Company Number: US-BRISTOL-MYERS SQUIBB COMPANY-14462758

PATIENT
  Age: 78 Year
  Sex: Female
  Weight: 67 kg

DRUGS (22)
  1. AVAPRO [Suspect]
  2. PLAVIX [Suspect]
     Route: 048
  3. MIRALAX [Suspect]
     Indication: CONSTIPATION
     Route: 048
     Dates: start: 20081102, end: 20081105
  4. TRAMADOL HCL [Suspect]
     Route: 048
  5. LOTREL [Suspect]
     Dosage: TAKEN AS 5 MG
     Route: 048
  6. LESCOL XL [Suspect]
     Dosage: TAKEN AS 80 MG
     Route: 048
  7. FOSAMAX [Suspect]
     Route: 048
  8. ZETIA [Suspect]
     Dosage: TAKEN AS 10 MG
     Route: 048
  9. ALLOPURINOL [Concomitant]
  10. FOLIC ACID [Concomitant]
  11. ASPIRIN [Concomitant]
  12. IRON [Concomitant]
  13. LYRICA [Concomitant]
  14. SYNTHROID [Concomitant]
  15. ZYDONE [Concomitant]
  16. PRILOSEC [Concomitant]
  17. ASCORBIC ACID [Concomitant]
  18. MULTI-VITAMIN [Concomitant]
  19. VITAMIN B COMPLEX CAP [Concomitant]
  20. PROCET [Concomitant]
  21. METAMUCIL [Concomitant]
  22. FLONASE [Concomitant]

REACTIONS (11)
  - ASTHENIA [None]
  - DEHYDRATION [None]
  - DIARRHOEA [None]
  - DIZZINESS [None]
  - FATIGUE [None]
  - HEADACHE [None]
  - HIATUS HERNIA [None]
  - NAUSEA [None]
  - RETCHING [None]
  - SWOLLEN TONGUE [None]
  - VOMITING [None]
